FAERS Safety Report 23852708 (Version 1)
Quarter: 2024Q2

REPORT INFORMATION
  Report Type: Spontaneous
  Country: CN (occurrence: CN)
  Receive Date: 20240514
  Receipt Date: 20240514
  Transmission Date: 20240716
  Serious: Yes (Hospitalization)
  Sender: FDA-Public Use
  Company Number: CN-PFIZER INC-PV202400062129

PATIENT
  Age: 26 Year
  Sex: Female
  Weight: 55 kg

DRUGS (2)
  1. METHOTREXATE SODIUM [Suspect]
     Active Substance: METHOTREXATE SODIUM
     Indication: Ectopic pregnancy
     Dosage: 20 MG, 1X/DAY
     Route: 042
     Dates: start: 20240428, end: 20240501
  2. SODIUM CHLORIDE [Concomitant]
     Active Substance: SODIUM CHLORIDE
     Indication: Vehicle solution use
     Dosage: 20 ML, 1X/DAY
     Route: 042
     Dates: start: 20240428, end: 20240501

REACTIONS (5)
  - Liver function test increased [Recovering/Resolving]
  - Gastrointestinal disorder [Recovering/Resolving]
  - Nausea [Recovered/Resolved]
  - Vomiting [Recovered/Resolved]
  - Off label use [Unknown]

NARRATIVE: CASE EVENT DATE: 20240428
